FAERS Safety Report 14965486 (Version 1)
Quarter: 2018Q2

REPORT INFORMATION
  Report Type: Report from Study
  Country: DE (occurrence: DE)
  Receive Date: 20180601
  Receipt Date: 20180601
  Transmission Date: 20180711
  Serious: No
  Sender: FDA-Public Use
  Company Number: DE-BIOVERATIV-2018BV000338

PATIENT
  Age: 1 Year
  Sex: Male

DRUGS (3)
  1. ELOCTA [Suspect]
     Active Substance: EFMOROCTOCOG ALFA
     Indication: IMMUNE TOLERANCE INDUCTION
  2. ELOCTA [Suspect]
     Active Substance: EFMOROCTOCOG ALFA
     Indication: FACTOR VIII DEFICIENCY
     Dosage: FROM 8 MONTHS AFTER MAJOR SPONTANEOUS BLEED (NO TREATMENT BEFORE THEN)
     Route: 065
  3. HEMLIBRA [Concomitant]
     Active Substance: EMICIZUMAB-KXWH
     Indication: PROPHYLAXIS
     Route: 065
     Dates: start: 201805

REACTIONS (2)
  - Off label use [Unknown]
  - Contusion [Unknown]
